FAERS Safety Report 14989798 (Version 1)
Quarter: 2018Q2

REPORT INFORMATION
  Report Type: Not Available
  Country: US (occurrence: US)
  Receive Date: 20180608
  Receipt Date: 20180608
  Transmission Date: 20180711
  Serious: No
  Sender: FDA-Public Use
  Company Number: US-NEUROCRINE BIOSCIENCES INC.-2018NBI01669

PATIENT
  Age: 65 Year
  Sex: Female

DRUGS (4)
  1. INGREZZA [Suspect]
     Active Substance: VALBENAZINE
     Route: 048
     Dates: start: 20170704
  2. INGREZZA [Suspect]
     Active Substance: VALBENAZINE
     Dosage: 40 MG CAP AS 2 CAP EVERY OTHER DAY ALTERNATING WITH 1 CAP EVERY OTHER DAY
     Route: 048
     Dates: start: 2018
  3. INGREZZA [Suspect]
     Active Substance: VALBENAZINE
     Dosage: 40 MG CAP AS 2 CAP EVERY OTHER DAY ALTERNATING WITH 1 CAP EVERY OTHER DAY
     Route: 048
     Dates: start: 2018
  4. INGREZZA [Suspect]
     Active Substance: VALBENAZINE
     Indication: PRODUCT USED FOR UNKNOWN INDICATION
     Route: 048
     Dates: start: 20170627, end: 20170703

REACTIONS (2)
  - Drug effect decreased [None]
  - Parkinsonism [Unknown]

NARRATIVE: CASE EVENT DATE: 20180523
